FAERS Safety Report 7170598-1 (Version None)
Quarter: 2010Q4

REPORT INFORMATION
  Report Type: 
  Country: None (occurrence: None)
  Receive Date: 20101217
  Receipt Date: 20101207
  Transmission Date: 20110411
  Serious: Yes (Other)
  Sender: FDA-Public Use
  Company Number: A0805887A

PATIENT
  Age: 43 Year
  Sex: Male
  Weight: 78.2 kg

DRUGS (5)
  1. AVANDIA [Suspect]
     Dosage: 8MG PER DAY
     Route: 048
     Dates: start: 20050703, end: 20071201
  2. TOPIRAMATE [Concomitant]
  3. LISINOPRIL [Concomitant]
  4. METFORMIN [Concomitant]
  5. SIMVASTATIN [Concomitant]

REACTIONS (1)
  - CEREBROVASCULAR ACCIDENT [None]
